FAERS Safety Report 8450453-7 (Version None)
Quarter: 2012Q2

REPORT INFORMATION
  Report Type: 
  Country: None (occurrence: None)
  Receive Date: 20120620
  Receipt Date: 20120606
  Transmission Date: 20120825
  Serious: Yes (Other)
  Sender: FDA-Public Use
  Company Number: GR-ASTELLAS-2012US005440

PATIENT
  Age: 25 Year
  Sex: Female

DRUGS (1)
  1. AMBISOME [Suspect]
     Indication: VISCERAL LEISHMANIASIS
     Dosage: UNK
     Route: 065

REACTIONS (4)
  - TUMOUR LYSIS SYNDROME [None]
  - RENAL IMPAIRMENT [None]
  - DRUG INEFFECTIVE [None]
  - BLOOD URIC ACID INCREASED [None]
